FAERS Safety Report 11103607 (Version 1)
Quarter: 2015Q2

REPORT INFORMATION
  Report Type: Spontaneous
  Country: CH (occurrence: CH)
  Receive Date: 20150511
  Receipt Date: 20150511
  Transmission Date: 20150821
  Serious: Yes (Hospitalization)
  Sender: FDA-Public Use
  Company Number: CH-PFIZER INC-2015156400

PATIENT
  Age: 54 Year
  Sex: Male

DRUGS (24)
  1. XARELTO [Suspect]
     Active Substance: RIVAROXABAN
     Indication: THROMBOSIS PROPHYLAXIS
     Dosage: 10 MG, SINGLE
     Route: 048
     Dates: start: 20150307, end: 20150308
  2. DAFALGAN [Suspect]
     Active Substance: ACETAMINOPHEN
     Indication: POSTOPERATIVE ANALGESIA
     Dosage: 1 G, UNK
     Route: 048
     Dates: start: 20150216, end: 20150224
  3. VENLAFAXIN [Concomitant]
     Active Substance: VENLAFAXINE HYDROCHLORIDE
     Dosage: 150 MG, 1X/DAY
     Route: 048
  4. VOLUVEN /06404801/ [Concomitant]
     Indication: KNEE OPERATION
     Route: 041
     Dates: start: 20150216, end: 20150216
  5. ROPIVACAINE [Concomitant]
     Active Substance: ROPIVACAINE
     Indication: KNEE OPERATION
     Dates: start: 20150216, end: 20150216
  6. BALDRIPARAN FUR DIE NACHT [Suspect]
     Active Substance: VALERIAN
     Dosage: 441 MG, UNK
     Route: 048
     Dates: start: 20150224, end: 20150227
  7. ZINACEF [Suspect]
     Active Substance: CEFUROXIME SODIUM
     Indication: KNEE OPERATION
     Dosage: 1.5 G, UNK
     Route: 041
     Dates: start: 20150216
  8. VALVERDE /02597501/ [Concomitant]
     Dosage: UNK UNK, SINGLE
     Route: 048
     Dates: start: 20150223, end: 20150223
  9. OXYCONTIN [Concomitant]
     Active Substance: OXYCODONE HYDROCHLORIDE
     Indication: POSTOPERATIVE ANALGESIA
     Dosage: 5 MG, 1X/DAY
     Route: 048
     Dates: start: 20150217, end: 20150218
  10. CARBOSTESIN [Concomitant]
     Active Substance: BUPIVACAINE HYDROCHLORIDE
     Indication: KNEE OPERATION
     Dates: start: 20150216, end: 20150216
  11. ZOLPIDEM [Suspect]
     Active Substance: ZOLPIDEM\ZOLPIDEM TARTRATE
     Dosage: 10 MG, DAILY
     Route: 048
     Dates: start: 20150227, end: 20150308
  12. FLUDEX /00340101/ [Concomitant]
     Active Substance: INDAPAMIDE
     Indication: HYPERTENSION
     Dosage: 1.5 MG, 1X/DAY
     Route: 048
  13. ERYTHROCYTES [Concomitant]
     Active Substance: HUMAN RED BLOOD CELL
     Indication: KNEE OPERATION
     Route: 041
     Dates: start: 20150216, end: 20150216
  14. SINTROM [Suspect]
     Active Substance: ACENOCOUMAROL
     Indication: THROMBOSIS PROPHYLAXIS
     Dosage: 1 MG, AS NEEDED
     Route: 048
     Dates: start: 20150222, end: 20150224
  15. CONDROSULF [Suspect]
     Active Substance: CHONDROITIN SULFATE (CHICKEN)
     Indication: ARTHRITIS
     Dosage: 800 MG, DAILY
     Route: 048
     Dates: end: 201503
  16. CLEXANE [Concomitant]
     Active Substance: ENOXAPARIN SODIUM
     Dosage: 40 MG, 2X/DAY
     Route: 058
     Dates: start: 20150308, end: 20150321
  17. RISPERIDON [Concomitant]
     Active Substance: RISPERIDONE
     Indication: ATTENTION DEFICIT/HYPERACTIVITY DISORDER
     Dosage: 1 MG, 2X/DAY
     Route: 048
  18. DORMICUM /00634102/ [Concomitant]
     Indication: PREOPERATIVE CARE
     Dosage: 2.5 MG, SINGLE
     Route: 048
     Dates: start: 20150216, end: 20150216
  19. NOVALGIN [Suspect]
     Active Substance: METAMIZOLE SODIUM
     Indication: POSTOPERATIVE ANALGESIA
     Dosage: 500 MG, UNK
     Route: 048
     Dates: start: 20150216, end: 20150317
  20. CLEXANE [Concomitant]
     Active Substance: ENOXAPARIN SODIUM
     Indication: THROMBOSIS PROPHYLAXIS
     Dosage: 60 MG, 1X/DAY
     Route: 058
     Dates: start: 20150216, end: 20150223
  21. NEXIUM [Suspect]
     Active Substance: ESOMEPRAZOLE MAGNESIUM
     Indication: GASTROOESOPHAGEAL REFLUX PROPHYLAXIS
     Route: 048
     Dates: start: 2015
  22. VENLAFAXIN [Concomitant]
     Active Substance: VENLAFAXINE HYDROCHLORIDE
     Indication: ATTENTION DEFICIT/HYPERACTIVITY DISORDER
     Route: 048
  23. FERRUM HAUSMANN /00023505/ [Concomitant]
     Dosage: 100 MG, SINGLE
     Route: 048
     Dates: start: 2015, end: 2015
  24. FRAGMIN [Suspect]
     Active Substance: DALTEPARIN SODIUM
     Indication: THROMBOSIS PROPHYLAXIS
     Dosage: 5000 IU, DAILY
     Route: 058
     Dates: start: 20150224, end: 20150306

REACTIONS (3)
  - Jaundice [Recovering/Resolving]
  - Hepatitis cholestatic [Recovering/Resolving]
  - Antinuclear antibody positive [Unknown]

NARRATIVE: CASE EVENT DATE: 201503
